FAERS Safety Report 9902419 (Version 2)
Quarter: 2014Q1

REPORT INFORMATION
  Report Type: Report from Study
  Country: GB (occurrence: GB)
  Receive Date: 20140217
  Receipt Date: 20140314
  Transmission Date: 20141002
  Serious: Yes (Hospitalization)
  Sender: FDA-Public Use
  Company Number: GB-JNJFOC-20140204480

PATIENT
  Age: 51 Year
  Sex: Female
  Weight: 78 kg

DRUGS (14)
  1. STELARA [Suspect]
     Indication: PSORIASIS
     Route: 058
     Dates: start: 20110530, end: 20120820
  2. GAVISCON NOS [Concomitant]
     Route: 065
     Dates: start: 20121130
  3. IBUPROFEN [Concomitant]
     Route: 065
     Dates: start: 20110218
  4. PARACETAMOL [Concomitant]
     Route: 065
     Dates: start: 20110218
  5. LEVOTHYROXINE SODIUM [Concomitant]
     Route: 065
     Dates: start: 20080407
  6. METHOTREXATE [Concomitant]
     Route: 065
     Dates: start: 20070701
  7. FLUCLOXACILLIN [Concomitant]
     Route: 065
     Dates: start: 20120812, end: 20120818
  8. FLUCLOXACILLIN [Concomitant]
     Route: 065
     Dates: start: 20120720, end: 20120727
  9. TRIMETHOPRIM [Concomitant]
     Route: 065
     Dates: start: 20131007, end: 20131013
  10. OMEPRAZOLE [Concomitant]
     Route: 065
     Dates: start: 20131007
  11. FLU VACCINE [Concomitant]
     Route: 065
     Dates: start: 20131017, end: 20131017
  12. TAMSULOSIN HYDROCHLORIDE [Concomitant]
     Route: 065
     Dates: start: 20131028, end: 20131104
  13. NOVOMIX [Concomitant]
     Route: 065
     Dates: start: 20130814
  14. DOMPERIDONE [Concomitant]
     Route: 065
     Dates: start: 20121130

REACTIONS (2)
  - Infective tenosynovitis [Recovered/Resolved]
  - Joint lock [Unknown]
